FAERS Safety Report 4366530-6 (Version None)
Quarter: 2004Q2

REPORT INFORMATION
  Report Type: 
  Country: None (occurrence: None)
  Receive Date: 20040527
  Receipt Date: 20030808
  Transmission Date: 20050107
  Serious: Yes (Life-Threatening, Hospitalization, Other)
  Sender: FDA-Public Use
  Company Number: US-MERCK-0308USA01037

PATIENT
  Age: 50 Year
  Sex: Male

DRUGS (8)
  1. TYLENOL [Concomitant]
     Route: 065
  2. AMIODARONE [Concomitant]
     Route: 065
  3. AMIODARONE [Concomitant]
     Route: 065
  4. CEFAZOLIN [Concomitant]
     Route: 065
  5. DOPAMINE HYDROCHLORIDE [Concomitant]
     Route: 065
  6. EPINEPHRINE [Concomitant]
     Route: 065
  7. PEPCID [Suspect]
     Indication: PROPHYLAXIS
     Route: 042
     Dates: start: 20030201, end: 20030201
  8. FENTANYL [Concomitant]
     Route: 042

REACTIONS (8)
  - ADVERSE EVENT [None]
  - ATRIAL FLUTTER [None]
  - ELECTROCARDIOGRAM QT PROLONGED [None]
  - ENDOCARDITIS [None]
  - NODAL RHYTHM [None]
  - RENAL IMPAIRMENT [None]
  - TORSADE DE POINTES [None]
  - VENTRICULAR TACHYCARDIA [None]
